FAERS Safety Report 4638395-6 (Version None)
Quarter: 2005Q2

REPORT INFORMATION
  Report Type: 
  Country: None (occurrence: None)
  Receive Date: 20050418
  Receipt Date: 20050328
  Transmission Date: 20051028
  Serious: Yes (Death)
  Sender: FDA-Public Use
  Company Number: US_0503114304

PATIENT
  Age: 71 Year
  Sex: Female

DRUGS (2)
  1. HUMALOG [Suspect]
     Dosage: UNK
     Route: 065
  2. HUMULIN 70/30 [Suspect]
     Dosage: UNK
     Route: 065

REACTIONS (1)
  - CARDIAC FAILURE CONGESTIVE [None]
